FAERS Safety Report 14964405 (Version 1)
Quarter: 2018Q2

REPORT INFORMATION
  Report Type: Spontaneous
  Country: KR (occurrence: KR)
  Receive Date: 20180601
  Receipt Date: 20180601
  Transmission Date: 20180711
  Serious: Yes (Other)
  Sender: FDA-Public Use
  Company Number: KR-BAYER-2018-099316

PATIENT
  Age: 70 Year
  Sex: Male

DRUGS (2)
  1. NEXAVAR [Suspect]
     Active Substance: SORAFENIB
     Dosage: UNK
  2. NEXAVAR [Suspect]
     Active Substance: SORAFENIB
     Dosage: DAILY DOSE 400 MG

REACTIONS (5)
  - Hepatic function abnormal [None]
  - Metastases to lymph nodes [None]
  - Alopecia [None]
  - Hepatocellular carcinoma [None]
  - Metastases to lung [None]
